FAERS Safety Report 10244592 (Version 2)
Quarter: 2014Q2

REPORT INFORMATION
  Report Type: Report from Study
  Country: US (occurrence: US)
  Receive Date: 20140618
  Receipt Date: 20140618
  Transmission Date: 20141212
  Serious: Yes (Other)
  Sender: FDA-Public Use
  Company Number: US-ASTRAZENECA-2013SE04754

PATIENT
  Age: 55 Year
  Sex: Female
  Weight: 75.3 kg

DRUGS (17)
  1. SYMBICORT PMDI [Suspect]
     Indication: CHRONIC OBSTRUCTIVE PULMONARY DISEASE
     Route: 055
  2. NEXIUM [Suspect]
     Indication: GASTROOESOPHAGEAL REFLUX DISEASE
     Route: 048
     Dates: start: 2010
  3. LISINOPRIL [Suspect]
     Indication: BLOOD PRESSURE ABNORMAL
     Route: 048
  4. PRILOSEC [Suspect]
     Indication: GASTROOESOPHAGEAL REFLUX DISEASE
     Route: 048
     Dates: start: 2004
  5. BLOOD PRESSURE MEDICATION [Concomitant]
  6. CARDURA [Concomitant]
     Indication: BLOOD PRESSURE ABNORMAL
     Route: 048
  7. PREVASTATIN [Concomitant]
     Indication: BLOOD CHOLESTEROL ABNORMAL
     Route: 048
  8. DOXAZOSIN [Concomitant]
     Indication: BLOOD PRESSURE ABNORMAL
     Route: 048
  9. BENZAPRINE [Concomitant]
     Indication: ANXIETY
     Route: 048
  10. XANAX [Concomitant]
     Indication: ANXIETY
     Dosage: 1 OR 2 MG PRN
     Route: 048
  11. LEVOCETIRIZINE [Concomitant]
     Indication: HYPERSENSITIVITY
     Route: 048
  12. POTASSIUM [Concomitant]
     Route: 048
  13. EFFEXOR [Concomitant]
     Indication: DEPRESSION
     Route: 048
  14. ABILIFY [Concomitant]
     Indication: DEPRESSION
     Route: 048
  15. FUROSEMIDE [Concomitant]
     Indication: FLUID RETENTION
     Route: 048
  16. ASPIRIN [Concomitant]
     Route: 048
  17. OCUVITE [Concomitant]
     Indication: CATARACT
     Route: 050

REACTIONS (18)
  - Renal failure [Unknown]
  - Carotid artery occlusion [Unknown]
  - Cerebrovascular accident [Unknown]
  - Subclavian artery occlusion [Unknown]
  - Ulcer haemorrhage [Recovered/Resolved]
  - Haemoptysis [Recovered/Resolved]
  - Blood pressure fluctuation [Recovered/Resolved]
  - Bladder disorder [Unknown]
  - Ulcer [Unknown]
  - Glucose tolerance impaired [Unknown]
  - Asthenia [Unknown]
  - Weight decreased [Unknown]
  - Hyperchlorhydria [Unknown]
  - Cataract [Not Recovered/Not Resolved]
  - Eructation [Not Recovered/Not Resolved]
  - Nausea [Not Recovered/Not Resolved]
  - Drug dose omission [Not Recovered/Not Resolved]
  - Drug ineffective [Unknown]
